FAERS Safety Report 9973372 (Version 2)
Quarter: 2014Q2

REPORT INFORMATION
  Report Type: Report from Study
  Country: DE (occurrence: DE)
  Receive Date: 20140306
  Receipt Date: 20140516
  Transmission Date: 20141212
  Serious: Yes (Hospitalization)
  Sender: FDA-Public Use
  Company Number: DE-JNJFOC-20140215240

PATIENT
  Age: 52 Year
  Sex: Male
  Weight: 72 kg

DRUGS (3)
  1. STELARA [Suspect]
     Indication: PSORIASIS
     Route: 058
     Dates: start: 20140213
  2. STELARA [Suspect]
     Indication: PSORIASIS
     Dosage: PATIENT RECEIVED 3 DOSES
     Route: 058
     Dates: start: 20130205, end: 20130528
  3. METHOTREXATE [Concomitant]
     Route: 048
     Dates: start: 201209, end: 201301

REACTIONS (1)
  - Prostate cancer [Recovered/Resolved]
